FAERS Safety Report 20740001 (Version 1)
Quarter: 2022Q2

REPORT INFORMATION
  Report Type: Report from Study
  Country: MX (occurrence: MX)
  Receive Date: 20220422
  Receipt Date: 20220422
  Transmission Date: 20220721
  Serious: Yes (Death)
  Sender: FDA-Public Use
  Company Number: MX-UCBSA-2022023045

PATIENT
  Sex: Male
  Weight: 52 kg

DRUGS (3)
  1. ROTIGOTINE [Suspect]
     Active Substance: ROTIGOTINE
     Indication: Parkinson^s disease
     Dosage: 4 MILLIGRAM, ONCE DAILY (QD)
     Route: 062
     Dates: start: 202106, end: 20220108
  2. CARBIDOPA AND LEVODOPA [Concomitant]
     Active Substance: CARBIDOPA\LEVODOPA
     Indication: Parkinson^s disease
     Dosage: UNK
     Route: 048
     Dates: end: 20220109
  3. KINEX [BIPERIDEN HYDROCHLORIDE] [Concomitant]
     Indication: Parkinson^s disease
     Dosage: UNK
     Route: 048
     Dates: end: 20220109

REACTIONS (1)
  - Gastric cancer stage IV [Fatal]
